FAERS Safety Report 5006314-9 (Version None)
Quarter: 2006Q2

REPORT INFORMATION
  Report Type: 
  Country: None (occurrence: None)
  Receive Date: 20060517
  Receipt Date: 20060517
  Transmission Date: 20061013
  Serious: Yes (Death, Life-Threatening, Hospitalization)
  Sender: FDA-Public Use
  Company Number: None

PATIENT
  Age: 66 Year
  Sex: Female
  Weight: 68 kg

DRUGS (13)
  1. ERLOTINIB 150MG [Suspect]
     Indication: NON-SMALL CELL LUNG CANCER
     Dosage: 150MG PO QD
     Route: 048
     Dates: start: 20040306, end: 20060405
  2. ERLOTINIB 100MG [Suspect]
     Dosage: 100MG PO
     Route: 048
     Dates: start: 20060420, end: 20060430
  3. ADVIL [Concomitant]
  4. AEROBID [Concomitant]
  5. BACROBAN [Concomitant]
  6. ELIDYL [Concomitant]
  7. MULTI-VITAMIN [Concomitant]
  8. LEVOFLOXICIN [Concomitant]
  9. D50W [Concomitant]
  10. FAMOTIDINE [Concomitant]
  11. LASIX [Concomitant]
  12. MAGNESIUM SULFATE [Concomitant]
  13. VITAMIN K [Concomitant]

REACTIONS (15)
  - AUTOIMMUNE DISORDER [None]
  - BIOPSY LIVER ABNORMAL [None]
  - CHOLELITHIASIS [None]
  - CHROMATURIA [None]
  - COMPUTERISED TOMOGRAM ABDOMEN ABNORMAL [None]
  - DRUG TOXICITY [None]
  - GENERAL PHYSICAL HEALTH DETERIORATION [None]
  - HEPATIC NECROSIS [None]
  - HEPATITIS [None]
  - HYPERBILIRUBINAEMIA [None]
  - INFECTION [None]
  - INFLAMMATION [None]
  - LETHARGY [None]
  - SKIN LESION [None]
  - SKIN TOXICITY [None]
